FAERS Safety Report 12717228 (Version 1)
Quarter: 2016Q3

REPORT INFORMATION
  Report Type: Spontaneous
  Country: US (occurrence: US)
  Receive Date: 20160906
  Receipt Date: 20160906
  Transmission Date: 20161109
  Serious: No
  Sender: FDA-Public Use
  Company Number: US-TOLMAR INC.-1057064

PATIENT
  Sex: Female

DRUGS (1)
  1. METRONIDAZOLE VAGINAL GEL USP, 0.75% (TOLMAR INC) [Suspect]
     Active Substance: METRONIDAZOLE
     Route: 067

REACTIONS (1)
  - Inappropriate schedule of drug administration [Unknown]
